FAERS Safety Report 14632278 (Version 1)
Quarter: 2018Q1

REPORT INFORMATION
  Report Type: Spontaneous
  Country: US (occurrence: US)
  Receive Date: 20180313
  Receipt Date: 20180313
  Transmission Date: 20180509
  Serious: No
  Sender: FDA-Public Use
  Company Number: US-ALLERGAN-1807237US

PATIENT
  Age: 74 Year
  Sex: Female
  Weight: 63.49 kg

DRUGS (3)
  1. SYNTHROID [Concomitant]
     Active Substance: LEVOTHYROXINE SODIUM
     Indication: CANCER SURGERY
     Dosage: UNK
     Route: 048
  2. OXYTROL FOR WOMEN [Suspect]
     Active Substance: OXYBUTYNIN
     Indication: URINARY INCONTINENCE
     Dosage: CHANGES PATCH EVERY 4 DAYS
     Route: 062
     Dates: start: 20171113, end: 20180222
  3. PANTOPRAZOLE [Concomitant]
     Active Substance: PANTOPRAZOLE
     Indication: GASTROOESOPHAGEAL REFLUX DISEASE
     Dosage: 40 MG, QD
     Route: 048

REACTIONS (3)
  - Application site irritation [Unknown]
  - Incorrect drug administration duration [Unknown]
  - Medication residue present [Unknown]
